FAERS Safety Report 17848336 (Version 1)
Quarter: 2020Q2

REPORT INFORMATION
  Report Type: Report from Study
  Country: None (occurrence: US)
  Receive Date: 20200602
  Receipt Date: 20200602
  Transmission Date: 20200714
  Serious: Yes (Other)
  Sender: FDA-Public Use
  Company Number: US-ABBVIE-20K-163-3327240-00

PATIENT
  Sex: Female

DRUGS (1)
  1. HUMIRA [Suspect]
     Active Substance: ADALIMUMAB
     Indication: HIDRADENITIS
     Route: 058

REACTIONS (16)
  - Emphysema [Unknown]
  - Urinary incontinence [Recovering/Resolving]
  - Hidradenitis [Unknown]
  - Knee arthroplasty [Unknown]
  - Groin abscess [Recovering/Resolving]
  - Back disorder [Unknown]
  - Thyroid disorder [Unknown]
  - Cyst [Unknown]
  - Sweat gland disorder [Unknown]
  - Hyperhidrosis [Unknown]
  - Insomnia [Unknown]
  - Bursitis [Unknown]
  - Diabetes mellitus [Unknown]
  - Hot flush [Unknown]
  - Arthritis [Recovering/Resolving]
  - Influenza [Unknown]

NARRATIVE: CASE EVENT DATE: 2017
